FAERS Safety Report 13825783 (Version 2)
Quarter: 2017Q3

REPORT INFORMATION
  Report Type: Report from Study
  Country: US (occurrence: US)
  Receive Date: 20170802
  Receipt Date: 20170920
  Transmission Date: 20171127
  Serious: No
  Sender: FDA-Public Use
  Company Number: PHEH2017US023348

PATIENT
  Age: 55 Year
  Sex: Female

DRUGS (2)
  1. MINOCYCLINE [Suspect]
     Active Substance: MINOCYCLINE\MINOCYCLINE HYDROCHLORIDE
     Indication: MEIBOMIAN GLAND DYSFUNCTION
     Dosage: TREATMENT CYCLE 7 DAYS
     Route: 065
  2. DOXYCYCLINE. [Suspect]
     Active Substance: DOXYCYCLINE
     Indication: MEIBOMIAN GLAND DYSFUNCTION
     Dosage: TREATMENT CYCLE 7 DAYS
     Route: 065

REACTIONS (2)
  - Condition aggravated [Unknown]
  - Meibomian gland dysfunction [Unknown]
